FAERS Safety Report 5099039-5 (Version None)
Quarter: 2006Q3

REPORT INFORMATION
  Report Type: 
  Country: None (occurrence: None)
  Receive Date: 20060731
  Receipt Date: 20060327
  Transmission Date: 20061208
  Serious: Yes (Hospitalization)
  Sender: FDA-Public Use
  Company Number: 223702

PATIENT
  Sex: 0

DRUGS (2)
  1. RITUXAN [Suspect]
     Indication: MYELODYSPLASTIC SYNDROME
  2. PREDNISONE TAB [Concomitant]

REACTIONS (1)
  - THROMBOCYTOPENIA [None]
